FAERS Safety Report 8812367 (Version 3)
Quarter: 2013Q3

REPORT INFORMATION
  Report Type: Report from Study
  Country: JP (occurrence: JP)
  Receive Date: 20120927
  Receipt Date: 20130913
  Transmission Date: 20140515
  Serious: Yes (Other)
  Sender: FDA-Public Use
  Company Number: JP-VERTEX PHARMACEUTICAL INC.-2012-021798

PATIENT
  Age: 60 Year
  Sex: Male

DRUGS (17)
  1. VX-950 (TELAPREVIR) [Suspect]
     Indication: CHRONIC HEPATITIS C
     Dosage: 2250 MG, QD
     Route: 048
     Dates: start: 20120727, end: 20120729
  2. VX-950 (TELAPREVIR) [Suspect]
     Dosage: 1500 MG, QD
     Route: 048
     Dates: start: 20120730
  3. PEGINTRON [Suspect]
     Indication: CHRONIC HEPATITIS C
     Dosage: 1.5 ?G/KG, QW
     Route: 058
     Dates: start: 20120727, end: 20120906
  4. PEGINTRON [Suspect]
     Dosage: 1.25 ?G/KG, QW
     Route: 058
     Dates: start: 20120907
  5. PEGINTRON [Suspect]
     Dosage: 1.25 ?G, QW
     Route: 058
     Dates: end: 20130110
  6. REBETOL [Suspect]
     Indication: CHRONIC HEPATITIS C
     Dosage: 800 MG, QD
     Route: 048
     Dates: start: 20120727, end: 20120816
  7. REBETOL [Suspect]
     Dosage: 600 MG, QD
     Route: 048
     Dates: start: 20120817, end: 20120903
  8. REBETOL [Suspect]
     Dosage: 400 MG, QD
     Route: 048
     Dates: start: 20120904, end: 20120906
  9. REBETOL [Suspect]
     Dosage: 200 MG, QD
     Route: 048
     Dates: start: 20120907
  10. REBETOL [Suspect]
     Dosage: 400 MG, UNK
     Route: 048
     Dates: end: 20121025
  11. REBETOL [Suspect]
     Dosage: 600 MG, UNK
     Route: 048
     Dates: start: 20121026, end: 20130110
  12. AMLODIN OD [Concomitant]
     Dosage: 5 MG, QD
     Route: 048
  13. OLMETEC [Concomitant]
     Dosage: 20 MG, QD
     Route: 048
  14. TAKEPRON [Concomitant]
     Dosage: 15 MG, QD
     Route: 048
  15. PLETAAL OD [Concomitant]
     Dosage: 200 MG, QD
     Route: 048
  16. RIBALL [Concomitant]
     Dosage: 300 MG, QD
     Route: 048
     Dates: start: 20120727, end: 20121101
  17. RIBALL [Concomitant]
     Dosage: 200 MG, UNK
     Route: 048
     Dates: start: 20121102, end: 20130110

REACTIONS (3)
  - Renal impairment [Recovered/Resolved]
  - Neutrophil count decreased [Recovered/Resolved]
  - Anaemia [Recovered/Resolved]
